FAERS Safety Report 6346132-2 (Version None)
Quarter: 2009Q3

REPORT INFORMATION
  Report Type: 
  Country: None (occurrence: None)
  Receive Date: 20090909
  Receipt Date: 20090901
  Transmission Date: 20100115
  Serious: Yes (Hospitalization)
  Sender: FDA-Public Use
  Company Number: JP-MERCK-0907USA02213

PATIENT
  Age: 74 Year
  Sex: Male

DRUGS (7)
  1. HYZAAR [Suspect]
     Indication: HYPERTENSION
     Route: 048
     Dates: start: 20090620, end: 20090708
  2. GASTER [Concomitant]
     Indication: GASTRITIS
     Route: 048
  3. ATELEC [Concomitant]
     Indication: HYPERTENSION
     Route: 048
  4. GASCON [Concomitant]
     Indication: CONSTIPATION
     Route: 048
  5. SELBEX [Concomitant]
     Indication: GASTRITIS
     Route: 048
  6. AMOBAN [Concomitant]
     Indication: INSOMNIA
     Route: 048
  7. DIOVAN [Concomitant]
     Indication: HYPERTENSION
     Route: 048
     Dates: end: 20090619

REACTIONS (4)
  - DECREASED APPETITE [None]
  - HYPONATRAEMIA [None]
  - MUSCULAR WEAKNESS [None]
  - RHABDOMYOLYSIS [None]
